FAERS Safety Report 7437883-7 (Version None)
Quarter: 2011Q2

REPORT INFORMATION
  Report Type: 
  Country: None (occurrence: None)
  Receive Date: 20110426
  Receipt Date: 20110418
  Transmission Date: 20111010
  Serious: Yes (Death)
  Sender: FDA-Public Use
  Company Number: B0703399A

PATIENT
  Sex: Male

DRUGS (9)
  1. ESANBUTOL [Concomitant]
     Dosage: 250MG PER DAY
     Route: 048
  2. NEUROVITAN [Concomitant]
     Route: 048
  3. REVOLADE [Suspect]
     Indication: IDIOPATHIC THROMBOCYTOPENIC PURPURA
     Dosage: 12.5MG PER DAY
     Route: 048
     Dates: start: 20110218, end: 20110223
  4. PREDONINE [Suspect]
     Indication: IDIOPATHIC THROMBOCYTOPENIC PURPURA
     Dosage: 5MG PER DAY
     Route: 048
     Dates: start: 20110218
  5. TAKEPRON [Concomitant]
     Route: 048
     Dates: start: 20110218
  6. ISONIAZID [Concomitant]
     Dosage: 300MG PER DAY
     Route: 048
  7. RIFADIN [Concomitant]
     Dosage: 450MG PER DAY
     Route: 048
  8. PYRAZINAMIDE [Concomitant]
     Dosage: 1.2G PER DAY
     Route: 048
  9. RACOL [Concomitant]
     Dosage: 1000ML PER DAY
     Dates: start: 20110218

REACTIONS (2)
  - DISSEMINATED TUBERCULOSIS [None]
  - MULTI-ORGAN FAILURE [None]
